FAERS Safety Report 21601957 (Version 2)
Quarter: 2023Q1

REPORT INFORMATION
  Report Type: Spontaneous
  Country: US (occurrence: US)
  Receive Date: 20221116
  Receipt Date: 20230112
  Transmission Date: 20230418
  Serious: Yes (Other)
  Sender: FDA-Public Use
  Company Number: US-CLOVIS ONCOLOGY-CLO-2022-001248

PATIENT
  Sex: Female

DRUGS (3)
  1. RUBRACA [Suspect]
     Active Substance: RUCAPARIB CAMSYLATE
     Indication: Ovarian cancer
     Dosage: 400 MILLIGRAM, BID
     Dates: start: 20220524
  2. RUBRACA [Suspect]
     Active Substance: RUCAPARIB CAMSYLATE
     Dosage: 200 MILLIGRAM, BID
     Dates: start: 202206
  3. OZEMPIC [Suspect]
     Active Substance: SEMAGLUTIDE
     Indication: Diabetes mellitus
     Dosage: UNK

REACTIONS (11)
  - Diabetes mellitus inadequate control [Not Recovered/Not Resolved]
  - Hernia [Unknown]
  - Panic reaction [Unknown]
  - Flatulence [Unknown]
  - Nightmare [Unknown]
  - Carbohydrate antigen 125 increased [Unknown]
  - Upper-airway cough syndrome [Unknown]
  - Cough [Recovering/Resolving]
  - Sneezing [Unknown]
  - Eructation [Unknown]
  - Abdominal distension [Unknown]

NARRATIVE: CASE EVENT DATE: 20220101
